FAERS Safety Report 5394055-8 (Version None)
Quarter: 2007Q3

REPORT INFORMATION
  Report Type: 
  Country: None (occurrence: None)
  Receive Date: 20070723
  Receipt Date: 20070213
  Transmission Date: 20080115
  Serious: No
  Sender: FDA-Public Use
  Company Number: A0639746A

PATIENT
  Sex: Female

DRUGS (5)
  1. AVANDIA [Suspect]
     Indication: DRUG USE FOR UNKNOWN INDICATION
     Route: 048
     Dates: start: 20070101
  2. LANTUS [Concomitant]
  3. ULTRALENTE [Concomitant]
  4. METFORMIN HCL [Concomitant]
  5. UNKNOWN MEDICATION [Concomitant]
     Indication: FLUID RETENTION

REACTIONS (1)
  - FATIGUE [None]
